FAERS Safety Report 26130635 (Version 1)
Quarter: 2025Q4

REPORT INFORMATION
  Report Type: Spontaneous
  Country: JP (occurrence: JP)
  Receive Date: 20251208
  Receipt Date: 20251208
  Transmission Date: 20260118
  Serious: Yes (Hospitalization)
  Sender: KYOWA
  Company Number: JP-KYOWAKIRIN-2025KK023346

PATIENT

DRUGS (1)
  1. TOREMIFENE [Suspect]
     Active Substance: TOREMIFENE
     Indication: Breast cancer
     Dosage: STRENGTH: 40, TABLET
     Route: 048

REACTIONS (1)
  - Uterine polyp [Unknown]
